FAERS Safety Report 11816001 (Version 5)
Quarter: 2018Q3

REPORT INFORMATION
  Report Type: Spontaneous
  Country: GB (occurrence: GB)
  Receive Date: 20151209
  Receipt Date: 20180813
  Transmission Date: 20181010
  Serious: Yes (Death, Congenital Anomaly, Other)
  Sender: FDA-Public Use
  Company Number: GB-GLAXOSMITHKLINE-GB2015173556

PATIENT
  Sex: Female
  Weight: .26 kg

DRUGS (12)
  1. TRUVADA [Suspect]
     Active Substance: EMTRICITABINE\TENOFOVIR DISOPROXIL FUMARATE
     Dosage: UNK
     Route: 064
     Dates: start: 20080117
  2. MIRTAZAPINE. [Suspect]
     Active Substance: MIRTAZAPINE
     Indication: DEPRESSION
     Dosage: DOSAGE FORM: UNSPECIFIED, MOTHER DOSING
     Route: 064
     Dates: start: 201406
  3. NORVIR [Suspect]
     Active Substance: RITONAVIR
     Dosage: 100 MG, QD
     Route: 064
     Dates: start: 201407, end: 20141201
  4. DARUNAVIR [Suspect]
     Active Substance: DARUNAVIR
     Indication: HIV INFECTION
     Dosage: 800 MG, QD
     Route: 064
     Dates: start: 20120401
  5. VALACYCLOVIR [Suspect]
     Active Substance: VALACYCLOVIR HYDROCHLORIDE
     Indication: HERPES VIRUS INFECTION
     Dosage: DOSAGE FORM: UNSPECIFIED, MOTHER DOSING
     Route: 064
     Dates: start: 20140918, end: 20141201
  6. DARUNAVIR [Suspect]
     Active Substance: DARUNAVIR
     Dosage: 800 MG, QD
     Route: 064
     Dates: start: 201407, end: 20141201
  7. LOPINAVIR + RITONAVIR TABLETS [Suspect]
     Active Substance: LOPINAVIR\RITONAVIR
     Indication: HIV INFECTION
     Dosage: UNK
     Route: 064
     Dates: start: 200809, end: 201204
  8. MIRTAZAPINE. [Suspect]
     Active Substance: MIRTAZAPINE
     Dosage: DOSAGE FORM: UNSPECIFIED
     Route: 064
     Dates: start: 201407, end: 20141201
  9. TRUVADA [Suspect]
     Active Substance: EMTRICITABINE\TENOFOVIR DISOPROXIL FUMARATE
     Indication: HIV INFECTION
     Dosage: UNK
     Route: 064
     Dates: start: 201407, end: 20141201
  10. NORVIR [Suspect]
     Active Substance: RITONAVIR
     Dosage: 4 UNK, QD
     Route: 064
     Dates: start: 201204
  11. CYCLIZINE [Suspect]
     Active Substance: CYCLIZINE
     Indication: VOMITING
     Dosage: DOSAGE FORM: UNSPECIFIED, MOTHER DOSING
     Route: 064
     Dates: start: 20140901, end: 20141030
  12. NORVIR [Suspect]
     Active Substance: RITONAVIR
     Indication: HIV INFECTION
     Dosage: 100 MG, QD
     Route: 064
     Dates: start: 20080117

REACTIONS (5)
  - Spina bifida [Fatal]
  - Foetal death [Fatal]
  - Foetal exposure during pregnancy [Recovered/Resolved]
  - Skull malformation [Fatal]
  - Cerebral ventricle dilatation [Fatal]

NARRATIVE: CASE EVENT DATE: 20141126
